FAERS Safety Report 9227594 (Version 2)
Quarter: 2013Q2

REPORT INFORMATION
  Report Type: Spontaneous
  Country: BR (occurrence: BR)
  Receive Date: 20130412
  Receipt Date: 20130422
  Transmission Date: 20140414
  Serious: Yes (Hospitalization, Other)
  Sender: FDA-Public Use
  Company Number: BR-VERTEX PHARMACEUTICALS INC.-2013-004812

PATIENT
  Age: 52 Year
  Sex: Female
  Weight: 72 kg

DRUGS (3)
  1. INCIVO [Suspect]
     Indication: HEPATITIS C
     Route: 065
     Dates: start: 201302, end: 20130412
  2. RIBAVIRIN [Concomitant]
     Indication: HEPATITIS C
     Dosage: DOSAGE FORM: UNKNOWN
     Route: 065
     Dates: start: 201102
  3. INTERFERON [Concomitant]
     Indication: HEPATITIS C
     Dosage: DOSAGE FORM: UNKNOWN
     Route: 065
     Dates: start: 201102

REACTIONS (13)
  - Hypothermia [Recovered/Resolved]
  - Fatigue [Not Recovered/Not Resolved]
  - Swelling [Not Recovered/Not Resolved]
  - Headache [Not Recovered/Not Resolved]
  - Hypersensitivity [Not Recovered/Not Resolved]
  - Gingival bleeding [Not Recovered/Not Resolved]
  - Genital discomfort [Unknown]
  - White blood cell count decreased [Not Recovered/Not Resolved]
  - Pruritus [Unknown]
  - Nausea [Unknown]
  - Platelet count decreased [Not Recovered/Not Resolved]
  - Diarrhoea [Not Recovered/Not Resolved]
  - Haemorrhoids [Not Recovered/Not Resolved]
